FAERS Safety Report 5336589-8 (Version None)
Quarter: 2007Q2

REPORT INFORMATION
  Report Type: 
  Country: None (occurrence: None)
  Receive Date: 20070529
  Receipt Date: 20070521
  Transmission Date: 20071010
  Serious: Yes (Hospitalization)
  Sender: FDA-Public Use
  Company Number: US-AMGEN-US217169

PATIENT
  Sex: Male
  Weight: 123.5 kg

DRUGS (7)
  1. ENBREL [Suspect]
     Indication: PSORIATIC ARTHROPATHY
     Route: 058
     Dates: start: 20030413
  2. ENBREL [Suspect]
     Indication: PSORIASIS
  3. FLOMAX [Concomitant]
     Route: 065
  4. GLUCOPHAGE [Concomitant]
     Route: 065
  5. LIPITOR [Concomitant]
     Route: 065
  6. METOPROLOL SUCCINATE [Concomitant]
     Route: 065
  7. TIAZAC [Concomitant]
     Route: 065

REACTIONS (4)
  - CEREBROVASCULAR ACCIDENT [None]
  - INTERVERTEBRAL DISC DEGENERATION [None]
  - PSORIASIS [None]
  - TRANSIENT ISCHAEMIC ATTACK [None]
